FAERS Safety Report 11007006 (Version 1)
Quarter: 2015Q2

REPORT INFORMATION
  Report Type: Spontaneous
  Country: US (occurrence: US)
  Receive Date: 20150409
  Receipt Date: 20150409
  Transmission Date: 20150821
  Serious: No
  Sender: FDA-Public Use
  Company Number: US-ALLERGAN-1503594US

PATIENT
  Sex: Female
  Weight: 56.69 kg

DRUGS (2)
  1. REFRESH [Concomitant]
     Active Substance: UNSPECIFIED INGREDIENT
     Indication: DRY EYE
     Dosage: UNK
  2. LATISSE [Suspect]
     Active Substance: BIMATOPROST
     Indication: PRODUCT USED FOR UNKNOWN INDICATION
     Dosage: 1 APPLICATION, QD
     Route: 061
     Dates: start: 20150120, end: 20150130

REACTIONS (3)
  - Eyelid ptosis [Unknown]
  - Asthenopia [Unknown]
  - Headache [Unknown]
